FAERS Safety Report 9990054 (Version 1)
Quarter: 2014Q1

REPORT INFORMATION
  Report Type: Report from Study
  Country: US (occurrence: US)
  Receive Date: 20140310
  Receipt Date: 20140310
  Transmission Date: 20141002
  Serious: No
  Sender: FDA-Public Use
  Company Number: US-ABBVIE-13P-163-1136248-00

PATIENT
  Sex: Female

DRUGS (5)
  1. HUMIRA [Suspect]
     Indication: RHEUMATOID ARTHRITIS
     Dates: end: 2011
  2. HUMIRA [Suspect]
     Dates: start: 2011
  3. IRON [Concomitant]
     Indication: PRODUCT USED FOR UNKNOWN INDICATION
  4. PAIN MEDICATION [Concomitant]
     Indication: PAIN
  5. ARAVA [Concomitant]
     Indication: PRODUCT USED FOR UNKNOWN INDICATION
     Dates: start: 2013

REACTIONS (3)
  - Musculoskeletal stiffness [Unknown]
  - Injection site nodule [Not Recovered/Not Resolved]
  - Rheumatoid arthritis [Unknown]
